FAERS Safety Report 15421062 (Version 1)
Quarter: 2018Q3

REPORT INFORMATION
  Report Type: Spontaneous
  Country: US (occurrence: US)
  Receive Date: 20180924
  Receipt Date: 20180924
  Transmission Date: 20181010
  Serious: No
  Sender: FDA-Public Use
  Company Number: US-FRI-1000073101

PATIENT
  Age: 68 Year
  Sex: Female

DRUGS (2)
  1. LINZESS [Suspect]
     Active Substance: LINACLOTIDE
     Indication: CONSTIPATION
     Dosage: 145 ?G, QD
     Route: 048
     Dates: end: 201712
  2. LINZESS [Suspect]
     Active Substance: LINACLOTIDE
     Dosage: 145 ?G, QOD
     Route: 048

REACTIONS (5)
  - Wrong technique in product usage process [Unknown]
  - Diarrhoea [Recovered/Resolved]
  - Intentional product misuse [Unknown]
  - Inappropriate schedule of drug administration [Unknown]
  - Product storage error [Unknown]
